FAERS Safety Report 10925807 (Version 1)
Quarter: 2015Q1

REPORT INFORMATION
  Report Type: Spontaneous
  Country: CA (occurrence: CA)
  Receive Date: 20150318
  Receipt Date: 20150318
  Transmission Date: 20150721
  Serious: Yes (Other)
  Sender: FDA-Public Use
  Company Number: CA-JNJFOC-20150305295

PATIENT
  Age: 55 Year
  Sex: Female
  Weight: 97.52 kg

DRUGS (2)
  1. TYLENOL EXTRA STRENGTH EZTAB [Suspect]
     Active Substance: ACETAMINOPHEN
     Indication: NASOPHARYNGITIS
     Dosage: 2 TABLETS
     Route: 048
     Dates: start: 20150301, end: 20150304
  2. TYLENOL EXTRA STRENGTH EZTAB [Suspect]
     Active Substance: ACETAMINOPHEN
     Indication: HEADACHE
     Dosage: 2 TABLETS
     Route: 048
     Dates: start: 20150301, end: 20150304

REACTIONS (4)
  - Diarrhoea [Unknown]
  - Physical product label issue [Unknown]
  - Drug hypersensitivity [Recovering/Resolving]
  - Muscle spasms [Unknown]

NARRATIVE: CASE EVENT DATE: 20150304
